FAERS Safety Report 23447000 (Version 1)
Quarter: 2024Q1

REPORT INFORMATION
  Report Type: Spontaneous
  Country: US (occurrence: US)
  Receive Date: 20240126
  Receipt Date: 20240126
  Transmission Date: 20240409
  Serious: Yes (Other)
  Sender: FDA-Public Use
  Company Number: US-BEH-2024167855

PATIENT
  Sex: Male

DRUGS (1)
  1. PRIVIGEN [Suspect]
     Active Substance: HUMAN IMMUNOGLOBULIN G
     Indication: Myositis
     Dosage: 35 GRAM, QD FOR 4 DAYS QMT (EVERY 4 WEEKS)
     Route: 042
     Dates: start: 202307

REACTIONS (3)
  - Nephrolithiasis [Unknown]
  - Off label use [Unknown]
  - No adverse event [Unknown]
